FAERS Safety Report 12283115 (Version 1)
Quarter: 2016Q2

REPORT INFORMATION
  Report Type: Spontaneous
  Country: US (occurrence: US)
  Receive Date: 20160419
  Receipt Date: 20160419
  Transmission Date: 20160815
  Serious: No
  Sender: FDA-Public Use
  Company Number: US-JAZZ-2015-US-010737

PATIENT
  Sex: Male

DRUGS (2)
  1. XYREM [Suspect]
     Active Substance: SODIUM OXYBATE
     Indication: HYPERSOMNIA
     Route: 048
  2. METHYLPHENIDATE HCL QUALITY CARE [Concomitant]
     Indication: HYPERSOMNIA
     Dosage: UNK
     Dates: start: 20150625

REACTIONS (1)
  - Product use issue [Unknown]
